FAERS Safety Report 4869805-7 (Version None)
Quarter: 2005Q4

REPORT INFORMATION
  Report Type: 
  Country: None (occurrence: None)
  Receive Date: 20051223
  Receipt Date: 20051202
  Transmission Date: 20060501
  Serious: Yes (Other)
  Sender: FDA-Public Use
  Company Number: US200512000931

PATIENT
  Age: 70 Year
  Sex: Female

DRUGS (1)
  1. EVISTA [Suspect]
     Dosage: ORAL
     Route: 048
     Dates: start: 20030101

REACTIONS (1)
  - CEREBROVASCULAR ACCIDENT [None]
